FAERS Safety Report 23424488 (Version 18)
Quarter: 2024Q4

REPORT INFORMATION
  Report Type: Spontaneous
  Country: US (occurrence: US)
  Receive Date: 20240120
  Receipt Date: 20241226
  Transmission Date: 20250115
  Serious: Yes (Life-Threatening, Hospitalization, Disabling, Other)
  Sender: ACCORD
  Company Number: US-Accord-402327

PATIENT
  Age: 77 Year
  Sex: Male
  Weight: 78 kg

DRUGS (45)
  1. PEMETREXED [Suspect]
     Active Substance: PEMETREXED
     Indication: Non-small cell lung cancer metastatic
     Dosage: 1Q3W
     Route: 042
     Dates: start: 20231114, end: 20231114
  2. CARBOPLATIN [Suspect]
     Active Substance: CARBOPLATIN
     Indication: Non-small cell lung cancer metastatic
     Dosage: 5 AUC, 1Q3W
     Route: 042
     Dates: start: 20231114, end: 20231114
  3. PEMBROLIZUMAB [Concomitant]
     Active Substance: PEMBROLIZUMAB
     Indication: Non-small cell lung cancer metastatic
     Dosage: 1Q3W
     Route: 042
     Dates: start: 20231114
  4. METRONIDAZOLE [Concomitant]
     Active Substance: METRONIDAZOLE
     Dates: start: 20231126, end: 20231130
  5. MUPIROCIN [Concomitant]
     Active Substance: MUPIROCIN
     Dates: start: 20231126
  6. VANCOMYCIN [Concomitant]
     Active Substance: VANCOMYCIN
     Dates: start: 20231125, end: 20231127
  7. BETAMETHASONE CLOTRIMAZOLE [Concomitant]
     Active Substance: BETAMETHASONE DIPROPIONATE\CLOTRIMAZOLE
     Dates: start: 20231126, end: 20231130
  8. NYSTATIN [Concomitant]
     Active Substance: NYSTATIN
     Dates: start: 20231124, end: 20231130
  9. FILGRASTIM [Concomitant]
     Active Substance: FILGRASTIM
     Dates: start: 20231124, end: 20231128
  10. CEFEPIME [Concomitant]
     Active Substance: CEFEPIME HYDROCHLORIDE
     Dates: start: 20231127, end: 20231128
  11. FUROSEMIDE [Concomitant]
     Active Substance: FUROSEMIDE
     Dates: start: 2017
  12. METOPROLOL [Concomitant]
     Active Substance: METOPROLOL
     Dates: start: 2008
  13. POTASSIUM CHLORIDE [Concomitant]
     Active Substance: POTASSIUM CHLORIDE
     Dates: start: 2018
  14. LISINOPRIL [Concomitant]
     Active Substance: LISINOPRIL
     Dates: start: 2008
  15. CLOPIDOGREL [Concomitant]
     Active Substance: CLOPIDOGREL BISULFATE
     Dates: start: 2020
  16. AZITHROMYCIN [Concomitant]
     Active Substance: AZITHROMYCIN
     Dates: start: 20231207, end: 20231207
  17. CEFTRIAXONE [Concomitant]
     Active Substance: CEFTRIAXONE
     Dates: start: 20231207, end: 20231207
  18. SODIUM CHLORIDE [Concomitant]
     Active Substance: SODIUM CHLORIDE
     Dates: start: 20231207, end: 20231207
  19. ENOXAPARIN [Concomitant]
     Active Substance: ENOXAPARIN
     Dates: start: 20231207
  20. ATORVASTATIN [Concomitant]
     Active Substance: ATORVASTATIN
     Dates: start: 2008
  21. PANTOPRAZOLE [Concomitant]
     Active Substance: PANTOPRAZOLE
     Dates: start: 20180321
  22. APIXABAN [Concomitant]
     Active Substance: APIXABAN
     Dates: start: 202010
  23. CHOLECALCIFEROL [Concomitant]
     Active Substance: CHOLECALCIFEROL
     Dates: start: 2020
  24. MAGNESIUM [Concomitant]
     Active Substance: MAGNESIUM
     Dates: start: 2020
  25. EMPAGLIFLOZIN [Concomitant]
     Active Substance: EMPAGLIFLOZIN
     Dates: start: 2022
  26. FERROUS GLUCONATE [Concomitant]
     Active Substance: FERROUS GLUCONATE
     Dates: start: 202209
  27. KETOCONAZOLE [Concomitant]
     Active Substance: KETOCONAZOLE
     Dates: start: 2023
  28. FOLIC ACID [Concomitant]
     Active Substance: FOLIC ACID
     Dates: start: 20231114
  29. BENADRYL [Concomitant]
     Active Substance: DIPHENHYDRAMINE HYDROCHLORIDE
     Dates: start: 20231120
  30. HUMAN RED BLOOD CELL [Concomitant]
     Active Substance: HUMAN RED BLOOD CELL
     Dates: start: 20231207, end: 20231207
  31. POTASSIUM [Concomitant]
     Active Substance: POTASSIUM
     Dates: start: 20231207, end: 20231207
  32. LASIX [Concomitant]
     Active Substance: FUROSEMIDE
     Dates: start: 20231206
  33. CLOTRIMAZOLE [Concomitant]
     Active Substance: CLOTRIMAZOLE
     Dates: start: 20231123, end: 20231130
  34. FLAGYL [Concomitant]
     Active Substance: METRONIDAZOLE\METRONIDAZOLE HYDROCHLORIDE
     Dates: start: 20231126, end: 20231130
  35. MAGNESIUM SULFATE [Concomitant]
     Active Substance: MAGNESIUM SULFATE
     Dates: start: 20231205, end: 20231205
  36. VENOFER [Concomitant]
     Active Substance: IRON SUCROSE
     Dates: start: 20231205, end: 20231205
  37. OMNICEF [Concomitant]
     Active Substance: CEFDINIR
     Dates: start: 20231128, end: 20231130
  38. BACTROBAN [Concomitant]
     Active Substance: MUPIROCIN CALCIUM
     Dates: start: 20231126, end: 20231130
  39. MYCOSTATIN [Concomitant]
     Active Substance: NYSTATIN
     Dates: start: 20231124, end: 20231130
  40. NICOTINE [Concomitant]
     Active Substance: NICOTINE
     Dates: start: 20231124, end: 20231130
  41. SALINE [Concomitant]
     Active Substance: SODIUM CHLORIDE
     Dates: start: 20231121, end: 20231121
  42. HYDROCORTISONE [Concomitant]
     Active Substance: HYDROCORTISONE
     Dates: start: 20231121
  43. CIPROFLOXACIN [Concomitant]
     Active Substance: CIPROFLOXACIN
     Dates: start: 20231121, end: 20231124
  44. CARBOPLATIN [Suspect]
     Active Substance: CARBOPLATIN
     Indication: Non-small cell lung cancer metastatic
     Dosage: 4 AUC, 1Q3W
     Route: 042
     Dates: start: 20231205, end: 20231205
  45. PEMETREXED [Suspect]
     Active Substance: PEMETREXED
     Indication: Non-small cell lung cancer metastatic
     Dosage: 1Q3W
     Route: 042
     Dates: start: 20231205, end: 20231205

REACTIONS (5)
  - Dyspnoea [Recovered/Resolved]
  - White blood cell count decreased [Unknown]
  - Platelet count decreased [Recovered/Resolved]
  - Hypotension [Recovered/Resolved]
  - Neutrophil count decreased [Recovered/Resolved]

NARRATIVE: CASE EVENT DATE: 20231121
